FAERS Safety Report 8524411-8 (Version None)
Quarter: 2012Q3

REPORT INFORMATION
  Report Type: 
  Country: None (occurrence: None)
  Receive Date: 20120716
  Receipt Date: 20120716
  Transmission Date: 20120928
  Serious: No
  Sender: FDA-Public Use
  Company Number: None

PATIENT
  Age: 54 Year
  Sex: Male
  Weight: 95.6 kg

DRUGS (1)
  1. PHENYTOIN [Suspect]
     Dosage: MG PO
     Route: 048
     Dates: start: 20120521, end: 20120523

REACTIONS (2)
  - VENTRICULAR EXTRASYSTOLES [None]
  - BRADYCARDIA [None]
